FAERS Safety Report 9746314 (Version 1)
Quarter: 2013Q4

REPORT INFORMATION
  Report Type: Spontaneous
  Country: US (occurrence: None)
  Receive Date: 20131209
  Receipt Date: 20131209
  Transmission Date: 20140711
  Serious: Yes (Hospitalization)
  Sender: FDA-Public Use
  Company Number: None

PATIENT
  Age: 90 Year
  Sex: Female
  Weight: 63.5 kg

DRUGS (2)
  1. ESKALITH CR [Suspect]
     Indication: DEPRESSION
     Route: 048
     Dates: start: 20131010, end: 20131218
  2. ESKALITH CR [Suspect]
     Indication: SEASONAL AFFECTIVE DISORDER
     Route: 048
     Dates: start: 20131010, end: 20131218

REACTIONS (4)
  - Drug eruption [None]
  - Tachyarrhythmia [None]
  - Hypotension [None]
  - Nervous system disorder [None]
